FAERS Safety Report 4898206-0 (Version None)
Quarter: 2006Q1

REPORT INFORMATION
  Report Type: 
  Country: None (occurrence: None)
  Receive Date: 20060127
  Receipt Date: 20060113
  Transmission Date: 20060701
  Serious: Yes (Hospitalization)
  Sender: FDA-Public Use
  Company Number: US200601002316

PATIENT
  Age: 41 Year
  Sex: Male

DRUGS (1)
  1. SYMBYAX [Suspect]
     Indication: PSYCHOTIC DISORDER
     Dates: start: 20051215, end: 20060106

REACTIONS (4)
  - JOINT STIFFNESS [None]
  - JOINT SWELLING [None]
  - SERUM SICKNESS [None]
  - URTICARIA [None]
